FAERS Safety Report 5354260-3 (Version None)
Quarter: 2007Q2

REPORT INFORMATION
  Report Type: 
  Country: None (occurrence: None)
  Receive Date: 20070612
  Receipt Date: 20070531
  Transmission Date: 20071010
  Serious: No
  Sender: FDA-Public Use
  Company Number: US-ASTRAZENECA-2006UW08395

PATIENT
  Age: 36 Year
  Sex: Female
  Weight: 84.1 kg

DRUGS (2)
  1. SEROQUEL [Suspect]
     Route: 048
  2. WELLBUTRIN XL [Concomitant]

REACTIONS (1)
  - HYPERGLYCAEMIA [None]
